FAERS Safety Report 8729372 (Version 3)
Quarter: 2012Q4

REPORT INFORMATION
  Report Type: Report from Study
  Country: US (occurrence: US)
  Receive Date: 20120817
  Receipt Date: 20120831
  Transmission Date: 20130627
  Serious: Yes (Hospitalization)
  Sender: FDA-Public Use
  Company Number: US-ABBOTT-12P-163-0889239-00

PATIENT
  Age: 30 Year
  Sex: Male
  Weight: 135.04 kg

DRUGS (9)
  1. HUMIRA 40 MG/0.8 ML PEN [Suspect]
     Indication: PSORIASIS
     Route: 058
     Dates: start: 201111, end: 20120101
  2. HUMIRA 40 MG/0.8 ML PEN [Suspect]
     Dates: start: 201208
  3. INVEGA [Concomitant]
     Indication: SCHIZOPHRENIA
  4. BUSPAR [Concomitant]
     Indication: ANXIETY
  5. COGENTIN [Concomitant]
     Indication: ILL-DEFINED DISORDER
  6. LEXAPRO [Concomitant]
     Indication: ANTIDEPRESSANT THERAPY
  7. SEROQUEL [Concomitant]
     Indication: PRODUCT USED FOR UNKNOWN INDICATION
  8. CLONAZEPAM [Concomitant]
     Indication: ANXIETY
  9. NEXIUM [Concomitant]
     Indication: PRODUCT USED FOR UNKNOWN INDICATION

REACTIONS (10)
  - Pleurisy [Recovering/Resolving]
  - Pulmonary mass [Not Recovered/Not Resolved]
  - Cough [Not Recovered/Not Resolved]
  - Headache [Recovered/Resolved]
  - Pyrexia [Recovered/Resolved]
  - Fatigue [Recovered/Resolved]
  - Dyspnoea [Recovering/Resolving]
  - Chest pain [Recovering/Resolving]
  - Cough [Recovering/Resolving]
  - Psoriasis [Not Recovered/Not Resolved]
